FAERS Safety Report 24227043 (Version 1)
Quarter: 2024Q3

REPORT INFORMATION
  Report Type: Spontaneous
  Country: US (occurrence: US)
  Receive Date: 20240820
  Receipt Date: 20240820
  Transmission Date: 20241016
  Serious: Yes (Other)
  Sender: HIKMA
  Company Number: HIKM2405271

PATIENT

DRUGS (1)
  1. MORPHINE SULFATE [Suspect]
     Active Substance: MORPHINE SULFATE
     Indication: Pain
     Dosage: UNKNOWN
     Route: 065

REACTIONS (2)
  - Myocardial infarction [Recovered/Resolved]
  - Drug hypersensitivity [Recovered/Resolved]
